FAERS Safety Report 8548907 (Version 5)
Quarter: 2013Q1

REPORT INFORMATION
  Report Type: Spontaneous
  Country: US (occurrence: None)
  Receive Date: 20120430
  Receipt Date: 20121213
  Transmission Date: 20140127
  Serious: Yes (Hospitalization)
  Sender: FDA-Public Use
  Company Number: 2012SGN00162

PATIENT
  Age: 77 Year
  Sex: Male
  Weight: 88.2 kg

DRUGS (6)
  1. BRENTUXIMAB VEDOTIN [Suspect]
     Route: 042
     Dates: start: 20120330, end: 20120330
  2. ALLOPURINOL [Concomitant]
  3. CELEXA [Concomitant]
  4. DILTIAZEM HYDROCHLORIDE [Concomitant]
  5. DYAZIDE (HYDROCHLOROTHIAIZDE, TRIAMTERENE) [Concomitant]
  6. METOPROLOL TARTRATE [Concomitant]

REACTIONS (4)
  - PANCREATITIS [None]
  - CONFUSIONAL STATE [None]
  - CHOLELITHIASIS [None]
  - HYPOPHAGIA [None]
